FAERS Safety Report 15387341 (Version 3)
Quarter: 2019Q1

REPORT INFORMATION
  Report Type: Report from Study
  Country: US (occurrence: US)
  Receive Date: 20180914
  Receipt Date: 20190121
  Transmission Date: 20190417
  Serious: Yes (Other)
  Sender: FDA-Public Use
  Company Number: US-TEVA-2018-US-954573

PATIENT
  Sex: Female

DRUGS (3)
  1. CLARAVIS [Suspect]
     Active Substance: ISOTRETINOIN
     Route: 065
  2. CLARAVIS [Suspect]
     Active Substance: ISOTRETINOIN
     Route: 065
  3. CLARAVIS [Suspect]
     Active Substance: ISOTRETINOIN
     Dosage: 80 MILLIGRAM DAILY; AVERAGE DAILY DOSE 80 MG
     Route: 065
     Dates: start: 20180416, end: 20180819

REACTIONS (2)
  - Unintended pregnancy [Unknown]
  - Abortion induced [Unknown]
